FAERS Safety Report 4333931-1 (Version None)
Quarter: 2004Q2

REPORT INFORMATION
  Report Type: 
  Country: None (occurrence: None)
  Receive Date: 20040402
  Receipt Date: 20040326
  Transmission Date: 20050107
  Serious: Yes (Hospitalization)
  Sender: FDA-Public Use
  Company Number: 2004-01-0055

PATIENT
  Age: 58 Year
  Sex: Female
  Weight: 93 kg

DRUGS (7)
  1. REBETOL [Suspect]
     Indication: HEPATITIS C
     Dosage: 800 MG QD ORAL
     Route: 048
     Dates: start: 20030411, end: 20031010
  2. INTRON A [Suspect]
     Indication: HEPATITIS C
     Dosage: 6 MU TIW-BIW* INTRAMUSCU
     Route: 030
     Dates: start: 20030225, end: 20030410
  3. INTRON A [Suspect]
     Indication: HEPATITIS C
     Dosage: 6 MU TIW-BIW* INTRAMUSCU
     Route: 030
     Dates: start: 20030411, end: 20031010
  4. INTRON A [Suspect]
     Indication: HEPATITIS C
     Dosage: 6 MU TIW-BIW* INTRAMUSCU
     Route: 030
     Dates: start: 20030225, end: 20031215
  5. INTRON A [Suspect]
     Indication: HEPATITIS C
     Dosage: 6 MU TIW-BIW* INTRAMUSCU
     Route: 030
     Dates: start: 20031013, end: 20031215
  6. LOXOPROFEN SODIUM TABLETS [Concomitant]
  7. REBAMIPIDE [Concomitant]

REACTIONS (14)
  - BLOOD IMMUNOGLOBULIN G INCREASED [None]
  - EPISTAXIS [None]
  - GINGIVAL BLEEDING [None]
  - HAEMATOCRIT DECREASED [None]
  - HAEMATOMA [None]
  - HAEMOPTYSIS [None]
  - IDIOPATHIC THROMBOCYTOPENIC PURPURA [None]
  - INDURATION [None]
  - INJECTION SITE HAEMORRHAGE [None]
  - PHARYNGEAL HAEMORRHAGE [None]
  - PHARYNX DISCOMFORT [None]
  - PLATELET COUNT DECREASED [None]
  - RED BLOOD CELL COUNT DECREASED [None]
  - WHITE BLOOD CELL COUNT DECREASED [None]
